FAERS Safety Report 4823361-8 (Version None)
Quarter: 2005Q4

REPORT INFORMATION
  Report Type: 
  Country: None (occurrence: None)
  Receive Date: 20051108
  Receipt Date: 20051108
  Transmission Date: 20060501
  Serious: Yes (Life-Threatening)
  Sender: FDA-Public Use
  Company Number: None

PATIENT
  Age: 25 Year
  Sex: Female

DRUGS (1)
  1. GEODON [Suspect]
     Dosage: 10MG   BID   INTRA CORP   (2 DOSES)
     Dates: start: 20050914, end: 20050915

REACTIONS (3)
  - CARDIO-RESPIRATORY ARREST [None]
  - DYSTONIA [None]
  - LARYNGEAL DISORDER [None]
